FAERS Safety Report 15315804 (Version 2)
Quarter: 2018Q3

REPORT INFORMATION
  Report Type: Spontaneous
  Country: US (occurrence: US)
  Receive Date: 20180824
  Receipt Date: 20180827
  Transmission Date: 20181010
  Serious: Yes (Other)
  Sender: FDA-Public Use
  Company Number: US-ASTRAZENECA-2018SF04272

PATIENT
  Age: 60 Year
  Sex: Male
  Weight: 9.1 kg

DRUGS (3)
  1. XIGDUO XR [Suspect]
     Active Substance: DAPAGLIFLOZIN PROPANEDIOL\METFORMIN HYDROCHLORIDE
     Indication: TYPE 2 DIABETES MELLITUS
     Dosage: UNKNOWN, EVERY DAY.
     Route: 048
     Dates: start: 20180731, end: 20180806
  2. TRADJENTA [Concomitant]
     Active Substance: LINAGLIPTIN
  3. METFORMIN [Concomitant]
     Active Substance: METFORMIN HYDROCHLORIDE

REACTIONS (2)
  - Ketoacidosis [Unknown]
  - Weight decreased [Unknown]
